FAERS Safety Report 12276851 (Version 1)
Quarter: 2016Q2

REPORT INFORMATION
  Report Type: Spontaneous
  Country: US (occurrence: None)
  Receive Date: 20160415
  Receipt Date: 20160415
  Transmission Date: 20160815
  Serious: Yes (Other)
  Sender: FDA-Public Use
  Company Number: None

PATIENT
  Age: 46 Year

DRUGS (3)
  1. DYSPORT [Suspect]
     Active Substance: ABOBOTULINUMTOXINA
  2. ARMPIT THYROID [Concomitant]
  3. ZONISAMIDE. [Suspect]
     Active Substance: ZONISAMIDE

REACTIONS (7)
  - Nausea [None]
  - Fatigue [None]
  - Headache [None]
  - Diarrhoea [None]
  - Arthralgia [None]
  - Pyrexia [None]
  - Alopecia [None]

NARRATIVE: CASE EVENT DATE: 20160101
